FAERS Safety Report 5628426-9 (Version None)
Quarter: 2008Q1

REPORT INFORMATION
  Report Type: 
  Country: None (occurrence: None)
  Receive Date: 20080215
  Receipt Date: 20080204
  Transmission Date: 20080703
  Serious: Yes (Other)
  Sender: FDA-Public Use
  Company Number: US-GILEAD-2007-0014483

PATIENT
  Sex: Male
  Weight: 133.02 kg

DRUGS (5)
  1. TRUVADA [Suspect]
     Indication: HIV INFECTION
     Route: 048
     Dates: start: 20060321, end: 20060905
  2. EFAVIRENZ [Concomitant]
     Indication: HIV INFECTION
     Dates: start: 20060321, end: 20060905
  3. FOSINOPRIL SODIUM [Concomitant]
     Route: 048
     Dates: start: 20051027
  4. PRAVASTATIN [Concomitant]
     Route: 048
     Dates: start: 20051027
  5. VITAMINS [Concomitant]
     Route: 048
     Dates: start: 20060401

REACTIONS (1)
  - VIRAL MUTATION IDENTIFIED [None]
